FAERS Safety Report 19602058 (Version 7)
Quarter: 2021Q3

REPORT INFORMATION
  Report Type: Spontaneous
  Country: GB (occurrence: GB)
  Receive Date: 20210722
  Receipt Date: 20210804
  Transmission Date: 20211014
  Serious: Yes (Life-Threatening, Hospitalization, Other)
  Sender: FDA-Public Use
  Company Number: GB-LUNDBECK-DKLU3035802

PATIENT
  Age: 49 Year
  Sex: Male
  Weight: 73 kg

DRUGS (13)
  1. VALPROATE SODIUM. [Suspect]
     Active Substance: VALPROATE SODIUM
     Indication: EPILEPSY
  2. MIDAZOLAM. [Suspect]
     Active Substance: MIDAZOLAM
     Indication: SEIZURE
     Route: 042
  3. LEVETIRACETAM. [Suspect]
     Active Substance: LEVETIRACETAM
     Indication: SEIZURE
     Dosage: UNK
     Route: 065
  4. MEROPENEM. [Concomitant]
     Active Substance: MEROPENEM
     Indication: PNEUMONIA
     Dosage: UNK
     Route: 065
  5. PHENYTOIN. [Suspect]
     Active Substance: PHENYTOIN
     Indication: SEIZURE
     Dosage: UNK
     Route: 065
  6. PHENYTOIN. [Suspect]
     Active Substance: PHENYTOIN
     Indication: EPILEPSY
  7. VANCOMYCIN [Concomitant]
     Active Substance: VANCOMYCIN
     Indication: PNEUMONIA
     Route: 065
  8. CLOBAZAM. [Suspect]
     Active Substance: CLOBAZAM
     Indication: SEIZURE
     Route: 065
  9. LEVETIRACETAM. [Suspect]
     Active Substance: LEVETIRACETAM
     Indication: EPILEPSY
  10. VALPROATE SODIUM. [Suspect]
     Active Substance: VALPROATE SODIUM
     Indication: SEIZURE
     Dosage: UNK
     Route: 048
  11. PIPERACILLIN SODIUM;TAZOBACTAM SODIUM [Concomitant]
     Active Substance: PIPERACILLIN SODIUM\TAZOBACTAM SODIUM
     Indication: PNEUMONIA
     Route: 065
  12. CLOBAZAM. [Suspect]
     Active Substance: CLOBAZAM
     Indication: EPILEPSY
  13. MIDAZOLAM. [Suspect]
     Active Substance: MIDAZOLAM
     Indication: EPILEPSY

REACTIONS (17)
  - Generalised oedema [Recovering/Resolving]
  - Blood triglycerides increased [Recovering/Resolving]
  - Drug reaction with eosinophilia and systemic symptoms [Recovering/Resolving]
  - Rash morbilliform [Recovering/Resolving]
  - Serum ferritin increased [Recovering/Resolving]
  - Eosinophil count increased [Recovering/Resolving]
  - General physical health deterioration [Recovering/Resolving]
  - Multiple organ dysfunction syndrome [Recovering/Resolving]
  - Pyrexia [Recovering/Resolving]
  - Renal impairment [Recovering/Resolving]
  - Haemophagocytic lymphohistiocytosis [Recovering/Resolving]
  - Alanine aminotransferase increased [Recovering/Resolving]
  - Dermatitis exfoliative generalised [Recovering/Resolving]
  - Lymphadenopathy [Recovering/Resolving]
  - Depressed level of consciousness [Recovering/Resolving]
  - Blood fibrinogen decreased [Recovering/Resolving]
  - Blood creatinine increased [Recovering/Resolving]
